FAERS Safety Report 14318478 (Version 1)
Quarter: 2017Q4

REPORT INFORMATION
  Report Type: Spontaneous
  Country: US (occurrence: US)
  Receive Date: 20171222
  Receipt Date: 20171222
  Transmission Date: 20180321
  Serious: Yes (Hospitalization)
  Sender: FDA-Public Use
  Company Number: US-009507513-1712USA011002

PATIENT
  Age: 74 Year
  Sex: Male
  Weight: 104.3 kg

DRUGS (4)
  1. KEYTRUDA [Suspect]
     Active Substance: PEMBROLIZUMAB
     Indication: PROSTATE CANCER
     Dosage: 200 MG, Q3W
     Route: 042
     Dates: start: 20170913, end: 20171005
  2. LUPRON [Concomitant]
     Active Substance: LEUPROLIDE ACETATE
     Indication: PROSTATE CANCER
     Dosage: 30 MG, Q4M
     Route: 030
     Dates: start: 201511, end: 20160712
  3. XTANDI [Concomitant]
     Active Substance: ENZALUTAMIDE
     Indication: PROSTATE CANCER
     Dosage: 160 MG, QD
     Route: 048
     Dates: start: 20160820
  4. XGEVA [Concomitant]
     Active Substance: DENOSUMAB
     Indication: BONE NEOPLASM
     Dosage: 120 MG, QM
     Route: 058
     Dates: start: 20160818

REACTIONS (4)
  - Pneumonitis [Recovered/Resolved]
  - Aspartate aminotransferase increased [Recovering/Resolving]
  - Product use in unapproved indication [Unknown]
  - Alanine aminotransferase increased [Recovering/Resolving]

NARRATIVE: CASE EVENT DATE: 20170913
